FAERS Safety Report 4332230-1 (Version None)
Quarter: 2004Q1

REPORT INFORMATION
  Report Type: 
  Country: None (occurrence: None)
  Receive Date: 20040329
  Receipt Date: 20040316
  Transmission Date: 20041129
  Serious: Yes (Other)
  Sender: FDA-Public Use
  Company Number: 2004-01110

PATIENT
  Age: 53 Year
  Sex: Female

DRUGS (4)
  1. DEXAMETHASONE [Suspect]
     Indication: CHEMOTHERAPY
  2. DOCETAXEL (DOCETAXEL) [Suspect]
     Indication: CHEMOTHERAPY
     Dosage: 30 MG, 1/WEEK
  3. DOLASETRON MESILATE(DOLASETRON MESILATE) [Suspect]
     Dosage: 50 MG, 1 WEEK
  4. PAMIDRONATE DISODIUM [Suspect]
     Dosage: 90 MG, 1/WEEK

REACTIONS (2)
  - IMPAIRED HEALING [None]
  - OSTEONECROSIS [None]
